FAERS Safety Report 26145420 (Version 1)
Quarter: 2025Q4

REPORT INFORMATION
  Report Type: Spontaneous
  Country: US (occurrence: None)
  Receive Date: 20251210
  Receipt Date: 20251210
  Transmission Date: 20260117
  Serious: Yes (Life-Threatening)
  Sender: FDA-CTU
  Company Number: None

PATIENT
  Age: 63 Year
  Sex: Male
  Weight: 95.5 kg

DRUGS (1)
  1. IOPAMIDOL [Suspect]
     Active Substance: IOPAMIDOL
     Dosage: OTHER FREQUENCY : ONCE;
     Route: 042

REACTIONS (2)
  - Contrast media allergy [None]
  - Anaphylactic reaction [None]

NARRATIVE: CASE EVENT DATE: 20251111
